FAERS Safety Report 5589392-8 (Version None)
Quarter: 2008Q1

REPORT INFORMATION
  Report Type: 
  Country: None (occurrence: None)
  Receive Date: 20080110
  Receipt Date: 20080110
  Transmission Date: 20080703
  Serious: Yes (Other)
  Sender: FDA-Public Use
  Company Number: None

PATIENT
  Sex: Female
  Weight: 54.4316 kg

DRUGS (2)
  1. AROMASIN [Suspect]
     Indication: BREAST CANCER
     Dosage: 25 MG. 1 PER DAY ORAL
     Route: 048
     Dates: start: 20050801, end: 20060101
  2. ARIMIDEX [Suspect]
     Indication: MALIGNANT PERITONEAL NEOPLASM
     Dosage: 1 PER DAY ORAL
     Route: 048
     Dates: start: 20060101, end: 20060301

REACTIONS (4)
  - ARTHRALGIA [None]
  - MUSCLE SPASMS [None]
  - TENDONITIS [None]
  - TRIGGER FINGER [None]
